FAERS Safety Report 21409378 (Version 1)
Quarter: 2022Q4

REPORT INFORMATION
  Report Type: Spontaneous
  Country: GR (occurrence: GR)
  Receive Date: 20221004
  Receipt Date: 20221004
  Transmission Date: 20230113
  Serious: Yes (Other)
  Sender: FDA-Public Use
  Company Number: GR-ELP-2022_090

PATIENT
  Age: 29 Year
  Sex: Female
  Weight: 54 kg

DRUGS (4)
  1. MEDROL [Suspect]
     Active Substance: METHYLPREDNISOLONE
     Indication: Hypersensitivity
     Dosage: 16 MG, 1X1
     Route: 048
     Dates: start: 20220906, end: 20220909
  2. AMOXICILLIN\CLAVULANATE POTASSIUM [Suspect]
     Active Substance: AMOXICILLIN\CLAVULANATE POTASSIUM
     Indication: Infection prophylaxis
     Dosage: 1X2
     Route: 048
     Dates: start: 20220827, end: 20220902
  3. OPRAZIUM [Concomitant]
     Indication: Abdominal pain upper
     Dosage: 1X1
     Route: 048
     Dates: start: 20220913, end: 20220915
  4. OPRAZIUM [Concomitant]
     Dosage: 1X1
     Route: 048
     Dates: start: 20220829, end: 20220903

REACTIONS (11)
  - Rash pruritic [Recovering/Resolving]
  - Lip swelling [Recovered/Resolved]
  - Hypersensitivity [Recovering/Resolving]
  - Angioedema [Recovering/Resolving]
  - Rash [Recovering/Resolving]
  - Eye swelling [Recovering/Resolving]
  - Diarrhoea [Recovered/Resolved]
  - Throat irritation [Recovered/Resolved]
  - Abdominal pain upper [Recovered/Resolved]
  - Nausea [Recovered/Resolved]
  - Dysphonia [Recovered/Resolved]

NARRATIVE: CASE EVENT DATE: 20220829
